FAERS Safety Report 17189333 (Version 1)
Quarter: 2019Q4

REPORT INFORMATION
  Report Type: Report from Study
  Country: US (occurrence: US)
  Receive Date: 20191223
  Receipt Date: 20191223
  Transmission Date: 20200122
  Serious: No
  Sender: FDA-Public Use
  Company Number: PHHY2019US145908

PATIENT
  Age: 77 Year
  Sex: Female
  Weight: 72.8 kg

DRUGS (3)
  1. LAMPRENE [Suspect]
     Active Substance: CLOFAZIMINE
     Indication: MYCOBACTERIUM ABSCESSUS INFECTION
     Dosage: 100 MG, QD
     Route: 048
     Dates: start: 20190516
  2. ETHAMBUTOL [Concomitant]
     Active Substance: ETHAMBUTOL HYDROCHLORIDE
     Indication: MYCOBACTERIUM ABSCESSUS INFECTION
     Dosage: 1 G, QD
     Route: 048
     Dates: start: 20190516
  3. AZITHROMYCIN ANHYDROUS. [Suspect]
     Active Substance: AZITHROMYCIN ANHYDROUS
     Indication: MYCOBACTERIUM ABSCESSUS INFECTION
     Dosage: 250 MG, UNK (MONDAY TO FRIDAY)
     Route: 048
     Dates: start: 20190516

REACTIONS (7)
  - Vomiting [Not Recovered/Not Resolved]
  - Viral upper respiratory tract infection [Recovered/Resolved]
  - Diarrhoea [Not Recovered/Not Resolved]
  - Epistaxis [Recovered/Resolved]
  - Rosacea [Not Recovered/Not Resolved]
  - Nausea [Recovered/Resolved]
  - Body temperature decreased [Recovered/Resolved]

NARRATIVE: CASE EVENT DATE: 20190518
